FAERS Safety Report 6391084-2 (Version None)
Quarter: 2009Q4

REPORT INFORMATION
  Report Type: 
  Country: None (occurrence: None)
  Receive Date: 20091006
  Receipt Date: 20091006
  Transmission Date: 20100525
  Serious: Yes (Hospitalization)
  Sender: FDA-Public Use
  Company Number: None

PATIENT
  Age: 53 Year
  Sex: Male
  Weight: 92.5 kg

DRUGS (2)
  1. OXAPROZIN [Suspect]
     Indication: PAIN
     Dosage: 600 MG BID PO
     Route: 048
     Dates: start: 20090519, end: 20090709
  2. NAPROXEN [Suspect]
     Indication: PAIN
     Dosage: 500 MG BID PO
     Route: 048
     Dates: start: 20080404, end: 20090519

REACTIONS (5)
  - GASTRIC HAEMORRHAGE [None]
  - GASTRIC ULCER [None]
  - GASTROENTERITIS [None]
  - GASTROINTESTINAL HAEMORRHAGE [None]
  - HAEMOGLOBIN DECREASED [None]
